FAERS Safety Report 7610617-9 (Version None)
Quarter: 2011Q3

REPORT INFORMATION
  Report Type: 
  Country: None (occurrence: None)
  Receive Date: 20110715
  Receipt Date: 20110706
  Transmission Date: 20111222
  Serious: Yes (Other)
  Sender: FDA-Public Use
  Company Number: NL-AMGEN-NLDSP2011031770

PATIENT
  Age: 64 Year
  Sex: Female

DRUGS (13)
  1. PAROXETINE HCL [Concomitant]
     Dosage: UNK
  2. METOPROLOL TARTRATE [Concomitant]
     Dosage: UNK
  3. FOLIC ACID [Concomitant]
     Dosage: UNK
  4. VASELINE                           /00473501/ [Concomitant]
     Dosage: UNK
  5. PANADOL                            /00020001/ [Concomitant]
     Dosage: UNK
  6. OXAZEPAM [Concomitant]
     Dosage: UNK
  7. SPIRIVA [Concomitant]
     Dosage: UNK
  8. ENBREL [Suspect]
     Indication: RHEUMATOID ARTHRITIS
     Dosage: 50 MG, WEEKLY
     Dates: start: 20110531
  9. RABEPRAZOLE SODIUM [Concomitant]
     Dosage: UNK
  10. PREDNISONE [Concomitant]
     Dosage: UNK
  11. CALCIUM CARBONATE [Concomitant]
     Dosage: UNK
  12. AMLODIPINE [Concomitant]
     Dosage: UNK
  13. SYMBICORT [Concomitant]
     Dosage: UNK

REACTIONS (2)
  - ERYSIPELAS [None]
  - OPEN WOUND [None]
